FAERS Safety Report 20207937 (Version 1)
Quarter: 2021Q4

REPORT INFORMATION
  Report Type: Spontaneous
  Country: US (occurrence: None)
  Receive Date: 20211220
  Receipt Date: 20211220
  Transmission Date: 20220303
  Serious: No
  Sender: FDA-Public Use
  Company Number: None

PATIENT
  Age: 68 Year
  Sex: Female
  Weight: 64.8 kg

DRUGS (10)
  1. ACETAMINOPHEN\OXYCODONE HYDROCHLORIDE [Suspect]
     Active Substance: ACETAMINOPHEN\OXYCODONE HYDROCHLORIDE
     Indication: Pain
     Dosage: OTHER QUANTITY : 1 TABLET(S);?FREQUENCY : EVERY 6 HOURS;?
     Route: 048
     Dates: start: 20211216
  2. CALCITRIOL [Concomitant]
     Active Substance: CALCITRIOL
  3. SOMA [Concomitant]
     Active Substance: CARISOPRODOL
  4. PERCOCET [Concomitant]
     Active Substance: ACETAMINOPHEN\OXYCODONE HYDROCHLORIDE
  5. MOMETASONE [Concomitant]
     Active Substance: MOMETASONE
  6. armoire thyroid [Concomitant]
  7. ACETAMINOPHEN\BUTALBITAL\CAFFEINE [Concomitant]
     Active Substance: ACETAMINOPHEN\BUTALBITAL\CAFFEINE
  8. DULOXETINE [Concomitant]
     Active Substance: DULOXETINE
  9. HYDROXYZINE [Concomitant]
     Active Substance: HYDROXYZINE HYDROCHLORIDE
  10. TYLENOL [Concomitant]
     Active Substance: ACETAMINOPHEN

REACTIONS (14)
  - Product substitution issue [None]
  - Headache [None]
  - Nausea [None]
  - Abdominal pain upper [None]
  - Oropharyngeal pain [None]
  - Pain [None]
  - Adverse drug reaction [None]
  - Product quality issue [None]
  - Drug ineffective [None]
  - Paradoxical drug reaction [None]
  - Dysuria [None]
  - Anger [None]
  - Mood altered [None]
  - Insomnia [None]

NARRATIVE: CASE EVENT DATE: 20211216
